FAERS Safety Report 20748688 (Version 1)
Quarter: 2022Q2

REPORT INFORMATION
  Report Type: Report from Study
  Country: BE (occurrence: BE)
  Receive Date: 20220426
  Receipt Date: 20220426
  Transmission Date: 20220721
  Serious: Yes (Death)
  Sender: FDA-Public Use
  Company Number: BE-Symogen - AB-202000014

PATIENT

DRUGS (4)
  1. LEUKINE [Suspect]
     Active Substance: SARGRAMOSTIM
     Indication: Respiratory failure
     Route: 065
  2. AMLODIPINE BESYLATE [Concomitant]
     Active Substance: AMLODIPINE BESYLATE
     Indication: Hypertension
     Dosage: 5 MG, PO, QD
     Route: 048
     Dates: start: 20200423, end: 20200425
  3. Amoxidar [Concomitant]
     Indication: Respiratory tract infection
     Dosage: 1 G, IV, FOUR (4) TIMES PER DAY
     Route: 042
     Dates: start: 20200424, end: 20200425
  4. NADROPARIN CALCIUM [Concomitant]
     Active Substance: NADROPARIN CALCIUM
     Indication: Thrombosis prophylaxis
     Dosage: 0.4 ML, ONCE A DAY
     Route: 058
     Dates: start: 20200424, end: 20200428

REACTIONS (1)
  - Respiratory failure [Fatal]

NARRATIVE: CASE EVENT DATE: 20200429
